FAERS Safety Report 7878044-7 (Version None)
Quarter: 2011Q4

REPORT INFORMATION
  Report Type: 
  Country: None (occurrence: None)
  Receive Date: 20111101
  Receipt Date: 20111031
  Transmission Date: 20120403
  Serious: Yes (Hospitalization)
  Sender: FDA-Public Use
  Company Number: US-BRISTOL-MYERS SQUIBB COMPANY-15040926

PATIENT
  Age: 66 Year
  Sex: Female

DRUGS (18)
  1. XL139 [Suspect]
     Indication: METASTATIC GASTRIC CANCER
     Route: 048
     Dates: start: 20100304
  2. SIMVASTATIN [Concomitant]
     Route: 048
     Dates: start: 20100210
  3. REGLAN [Concomitant]
     Route: 048
     Dates: start: 20100319
  4. CISPLATIN [Suspect]
     Indication: METASTATIC GASTRIC CANCER
     Dosage: INTERRUPTED ON 08APR10
     Route: 042
     Dates: start: 20100318
  5. NORVASC [Concomitant]
     Route: 048
     Dates: start: 20100210
  6. CISPLATIN [Suspect]
     Indication: METASTASES TO PERITONEUM
     Dosage: INTERRUPTED ON 08APR10
     Route: 042
     Dates: start: 20100318
  7. XELODA [Suspect]
     Indication: METASTASES TO PERITONEUM
     Route: 048
     Dates: start: 20100318
  8. HYDROCHLOROTHIAZIDE [Concomitant]
     Route: 048
     Dates: start: 20100210
  9. COLACE [Concomitant]
     Route: 048
     Dates: start: 20100319
  10. XL139 [Suspect]
     Indication: METASTASES TO PERITONEUM
     Route: 048
     Dates: start: 20100304
  11. COZAAR [Concomitant]
     Dosage: TAB,Q6
     Route: 048
     Dates: start: 20100210
  12. POTASSIUM CHLORIDE [Concomitant]
     Dosage: TAB
     Route: 048
     Dates: start: 20100210
  13. PRILOSEC [Concomitant]
     Dosage: CAP
     Route: 048
     Dates: start: 20100319
  14. DILAUDID [Concomitant]
     Route: 048
  15. ZOFRAN [Concomitant]
     Route: 048
     Dates: start: 20100319
  16. IMODIUM [Concomitant]
     Dates: start: 20100319
  17. XELODA [Suspect]
     Indication: METASTATIC GASTRIC CANCER
     Route: 048
     Dates: start: 20100318
  18. GLYBURIDE [Concomitant]
     Dates: start: 20091022

REACTIONS (1)
  - LIPASE INCREASED [None]
